FAERS Safety Report 23578840 (Version 1)
Quarter: 2024Q1

REPORT INFORMATION
  Report Type: Report from Study
  Country: US (occurrence: US)
  Receive Date: 20240229
  Receipt Date: 20240229
  Transmission Date: 20240410
  Serious: Yes (Death)
  Sender: FDA-Public Use
  Company Number: US-002147023-NVSC2024US041824

PATIENT
  Age: 77 Year

DRUGS (1)
  1. LEQVIO [Suspect]
     Active Substance: INCLISIRAN SODIUM
     Indication: Product used for unknown indication
     Dosage: 284 MG (PER 284 MG/1.5 ML (189 MG/ML) (AFTER FIRST INJECTION 3 MONTHS THEN EVERY SIX MONTHS AFTER)
     Route: 065
     Dates: start: 20230909, end: 20231212

REACTIONS (1)
  - Death [Fatal]
